FAERS Safety Report 4973152-2 (Version None)
Quarter: 2006Q2

REPORT INFORMATION
  Report Type: 
  Country: None (occurrence: None)
  Receive Date: 20060407
  Receipt Date: 20060323
  Transmission Date: 20061013
  Serious: Yes (Other)
  Sender: FDA-Public Use
  Company Number: 6021475F

PATIENT
  Age: 52 Year
  Sex: Male

DRUGS (6)
  1. NIASPAN [Suspect]
     Indication: MIXED HYPERLIPIDAEMIA
     Dosage: 375 MG QD PO
     Route: 048
     Dates: start: 20060201, end: 20060323
  2. ROSUVASTATIN [Concomitant]
  3. METFORMIN [Concomitant]
  4. INSULIN [Concomitant]
  5. CAPTOPRIL [Concomitant]
  6. EYE DROPS [Concomitant]

REACTIONS (1)
  - IIIRD NERVE PARALYSIS [None]
